FAERS Safety Report 5656628-4 (Version None)
Quarter: 2008Q1

REPORT INFORMATION
  Report Type: 
  Country: None (occurrence: None)
  Receive Date: 20080307
  Receipt Date: 20080307
  Transmission Date: 20080703
  Serious: Yes (Hospitalization)
  Sender: FDA-Public Use
  Company Number: None

PATIENT
  Sex: Male
  Weight: 69.8539 kg

DRUGS (2)
  1. OXALIPLATIN [Suspect]
     Indication: LARYNGEAL CANCER
     Dosage: 155MG DAYS 1 + 15Q28DAYS IV DRIP
     Route: 041
     Dates: start: 20071220, end: 20080221
  2. XELODA [Suspect]
     Indication: LARYNGEAL CANCER
     Dosage: 1500MG BID DAYS 1-7, DAYS 15-21 PO
     Route: 048
     Dates: start: 20071220, end: 20080221

REACTIONS (2)
  - BLOOD POTASSIUM DECREASED [None]
  - INGUINAL HERNIA, OBSTRUCTIVE [None]
